FAERS Safety Report 7438956-5 (Version None)
Quarter: 2011Q2

REPORT INFORMATION
  Report Type: 
  Country: None (occurrence: None)
  Receive Date: 20110426
  Receipt Date: 20110421
  Transmission Date: 20111010
  Serious: Yes (Life-Threatening, Hospitalization)
  Sender: FDA-Public Use
  Company Number: US-BRISTOL-MYERS SQUIBB COMPANY-15415458

PATIENT
  Age: 79 Year
  Sex: Male
  Weight: 68 kg

DRUGS (8)
  1. PROTONIX [Concomitant]
     Dates: start: 20090908
  2. CISPLATIN [Suspect]
     Indication: SARCOMA
     Dosage: LAST DOSE:28OCT10; END OF THERAPY VISIT ON 09DEC2010.30SEP2010-28OCT2010(29 DAYS).
     Route: 042
     Dates: start: 20100930, end: 20101209
  3. IMODIUM [Concomitant]
     Dates: start: 20101007
  4. FLOMAX [Concomitant]
     Dates: start: 20090407
  5. COMPAZINE [Concomitant]
     Dates: start: 20100930
  6. ASPIRIN [Concomitant]
     Dates: start: 20091001
  7. ATIVAN [Concomitant]
     Dates: start: 20100930
  8. PLATELETS [Concomitant]
     Dates: start: 20101111, end: 20101111

REACTIONS (6)
  - VENTRICULAR TACHYCARDIA [None]
  - FEBRILE NEUTROPENIA [None]
  - ATRIAL FIBRILLATION [None]
  - SEPTIC SHOCK [None]
  - THROMBOCYTOPENIA [None]
  - HERPES ZOSTER [None]
